FAERS Safety Report 16825857 (Version 1)
Quarter: 2019Q3

REPORT INFORMATION
  Report Type: Spontaneous
  Country: US (occurrence: US)
  Receive Date: 20190919
  Receipt Date: 20190919
  Transmission Date: 20191005
  Serious: Yes (Hospitalization, Other)
  Sender: FDA-Public Use
  Company Number: US-MACLEODS PHARMACEUTICALS US LTD-MAC2019022969

PATIENT

DRUGS (1)
  1. LEVOCETIRIZINE DIHYDROCHLORIDE 5MG TABLET [Suspect]
     Active Substance: LEVOCETIRIZINE DIHYDROCHLORIDE
     Indication: ANTIALLERGIC THERAPY
     Dosage: 5 MILLIGRAM, HALF OF 5 MG.
     Route: 048
     Dates: start: 20190801

REACTIONS (5)
  - Multiple fractures [Recovering/Resolving]
  - Cerebral haemorrhage [Recovering/Resolving]
  - Multiple injuries [Recovering/Resolving]
  - Loss of consciousness [Recovering/Resolving]
  - Fall [Recovering/Resolving]

NARRATIVE: CASE EVENT DATE: 20190801
